FAERS Safety Report 16763721 (Version 1)
Quarter: 2019Q3

REPORT INFORMATION
  Report Type: Spontaneous
  Country: RO (occurrence: RO)
  Receive Date: 20190902
  Receipt Date: 20190902
  Transmission Date: 20191005
  Serious: Yes (Death)
  Sender: FDA-Public Use
  Company Number: RO-PFIZER INC-2018377850

PATIENT
  Sex: Female

DRUGS (3)
  1. LETROZOL [Concomitant]
     Active Substance: LETROZOLE
     Indication: BREAST CANCER METASTATIC
     Dosage: CONTINUOUS REGIMEN
  2. IBRANCE [Suspect]
     Active Substance: PALBOCICLIB
     Dosage: 100 MG/ DAY, CYCLIC, 3 WEEKS/ 1 WEEK PAUSE
  3. IBRANCE [Suspect]
     Active Substance: PALBOCICLIB
     Indication: BREAST CANCER METASTATIC
     Dosage: 125 MG, CYCLIC, 3 WEEKS OF TREATMENT WITH 1 WEEK OF PAUSE

REACTIONS (3)
  - Death [Fatal]
  - Decreased appetite [Recovered/Resolved]
  - Fatigue [Recovered/Resolved]
